FAERS Safety Report 4902232-2 (Version None)
Quarter: 2006Q1

REPORT INFORMATION
  Report Type: 
  Country: None (occurrence: None)
  Receive Date: 20060202
  Receipt Date: 20060119
  Transmission Date: 20060701
  Serious: Yes (Hospitalization)
  Sender: FDA-Public Use
  Company Number: 221091

PATIENT
  Age: 42 Year
  Sex: Male

DRUGS (3)
  1. AVASTIN [Suspect]
     Indication: GASTROOESOPHAGEAL CANCER
     Dosage: 15 MG/KG, Q3W, INTRAVENOUS
     Route: 042
     Dates: start: 20051221, end: 20060113
  2. OXALIPLATIN (OXALIPLATIN) [Suspect]
     Indication: GASTROOESOPHAGEAL CANCER
     Dosage: 75 MG/M2, Q3W, INTRAVENOUS
     Route: 042
     Dates: start: 20051221, end: 20060111
  3. DOCETAXEL (DOCETAXEL) [Suspect]
     Indication: GASTROOESOPHAGEAL CANCER
     Dosage: 70 MG/M2, Q3W, INTRAVENOUS
     Route: 042
     Dates: start: 20051221, end: 20060111

REACTIONS (4)
  - GASTROINTESTINAL PERFORATION [None]
  - HAEMOGLOBIN DECREASED [None]
  - NEUTROPHIL COUNT ABNORMAL [None]
  - PLATELET COUNT DECREASED [None]
